FAERS Safety Report 9913454 (Version 1)
Quarter: 2014Q1

REPORT INFORMATION
  Report Type: Spontaneous
  Country: US (occurrence: None)
  Receive Date: 20140219
  Receipt Date: 20140219
  Transmission Date: 20141002
  Serious: Yes (Hospitalization)
  Sender: FDA-Public Use
  Company Number: None

PATIENT
  Age: 31 Year
  Sex: Male
  Weight: 141.8 kg

DRUGS (38)
  1. CYTARABINE [Suspect]
     Dosage: LAST DOSE OF CYTARBIEN WAS HELD BECAUSE OF SIGNS OF HYPOTENSION AND OLIGURIA
     Dates: end: 20140102
  2. DAUNORUBICIN [Suspect]
     Dates: end: 20131230
  3. ACETAMINOPHEN [Concomitant]
  4. ACYCLOVIR [Concomitant]
  5. AMIODARONE [Concomitant]
  6. CALCIUM CARBONATE [Concomitant]
  7. CIPROFLOXACIN [Concomitant]
  8. ENOXAPARIN [Concomitant]
  9. FENTANYL [Concomitant]
  10. FILGRASTIM [Concomitant]
  11. FUROSEMIDE [Concomitant]
  12. GANCICLOVIR [Concomitant]
  13. HYDROMORPHONE [Concomitant]
  14. INSULIN HUMAN [Concomitant]
  15. INSULIN LISPRO [Concomitant]
  16. LINEZOLID [Concomitant]
  17. LORAZEPAM [Concomitant]
  18. MAGNESIUM SULFATE [Concomitant]
  19. MEPERIDINE [Concomitant]
  20. MEROPENEM [Concomitant]
  21. METHYLPREDNISOLONE SODIUM SUCCINATE [Concomitant]
  22. METRONIDAZOLE [Concomitant]
  23. MIDAZOLAM [Concomitant]
  24. MORPHINE [Concomitant]
  25. MUCOSITITS MIXTURE [Concomitant]
  26. NOREPINEPHRINE PHENYLLYPHRINE [Concomitant]
  27. NORMAL SALINE [Concomitant]
  28. ONDANSETRON [Concomitant]
  29. PANTOPRAZOLE [Concomitant]
  30. POTASSIUM CHLORIDE [Concomitant]
  31. POTASSIUM AND SODIUM PHOSPHATES PACKETS [Concomitant]
  32. RANITIDINE [Concomitant]
  33. SODIUM BICARBONATE [Concomitant]
  34. VANCOYCIN [Concomitant]
  35. VASOPRESSIN [Concomitant]
  36. VITAMIN K [Concomitant]
  37. VORICONAZOLE [Concomitant]
  38. DOXYCYCLINE [Concomitant]

REACTIONS (13)
  - Hypotension [None]
  - Renal failure [None]
  - Tachypnoea [None]
  - Mental status changes [None]
  - Colitis [None]
  - Culture positive [None]
  - Enterococcal infection [None]
  - Pyrexia [None]
  - Neuroleptic malignant syndrome [None]
  - Hepatic failure [None]
  - Hepatosplenomegaly [None]
  - Cholelithiasis [None]
  - Ventricular tachycardia [None]
